FAERS Safety Report 9386174 (Version 1)
Quarter: 2013Q3

REPORT INFORMATION
  Report Type: Spontaneous
  Country: US (occurrence: US)
  Receive Date: 20130707
  Receipt Date: 20130707
  Transmission Date: 20140515
  Serious: Yes (Hospitalization)
  Sender: FDA-Public Use
  Company Number: US-B.I. PHARMACEUTICALS,INC./RIDGEFIELD-2013-BI-19185BP

PATIENT
  Age: 62 Year
  Sex: Male

DRUGS (10)
  1. PRADAXA [Suspect]
     Indication: CEREBROVASCULAR ACCIDENT PROPHYLAXIS
     Dosage: 300 MG
     Route: 048
     Dates: start: 2012, end: 201306
  2. PRADAXA [Suspect]
     Indication: ATRIAL FIBRILLATION
  3. LASIX [Concomitant]
  4. DILTIAZEM [Concomitant]
  5. LOPRESSOR [Concomitant]
  6. POTASSIUM [Concomitant]
  7. RAMIPRIL [Concomitant]
  8. DIGOXIN [Concomitant]
  9. PROTONIX [Concomitant]
  10. FISH OIL [Concomitant]

REACTIONS (1)
  - Thrombosis [Recovered/Resolved]
